FAERS Safety Report 6249977-2 (Version None)
Quarter: 2009Q2

REPORT INFORMATION
  Report Type: 
  Country: None (occurrence: None)
  Receive Date: 20090629
  Receipt Date: 20090616
  Transmission Date: 20091009
  Serious: Yes (Hospitalization)
  Sender: FDA-Public Use
  Company Number: DE-GENENTECH-284908

PATIENT
  Sex: Female

DRUGS (4)
  1. RITUXIMAB [Suspect]
     Indication: HODGKIN'S DISEASE
     Dosage: UNK
     Route: 042
     Dates: start: 20090525
  2. ADRIAMYCIN RDF [Suspect]
     Indication: HODGKIN'S DISEASE
     Dosage: 25 MG/M2, UNK
     Route: 042
     Dates: start: 20090525
  3. ETOPOSIDE [Suspect]
     Indication: HODGKIN'S DISEASE
     Dosage: 100 MG/M2, UNK
     Route: 065
     Dates: start: 20090525
  4. CYCLOPHOSPHAMIDE [Suspect]
     Indication: HODGKIN'S DISEASE
     Dosage: 650 MG/M2, UNK
     Route: 065
     Dates: start: 20090525

REACTIONS (2)
  - PNEUMOCYSTIS JIROVECI PNEUMONIA [None]
  - RESPIRATORY FAILURE [None]
